FAERS Safety Report 9438795 (Version 1)
Quarter: 2013Q3

REPORT INFORMATION
  Report Type: Spontaneous
  Country: US (occurrence: US)
  Receive Date: 20130802
  Receipt Date: 20130802
  Transmission Date: 20140515
  Serious: Yes (Other)
  Sender: FDA-Public Use
  Company Number: US-BRISTOL-MYERS SQUIBB COMPANY-19150812

PATIENT
  Sex: 0

DRUGS (1)
  1. BYETTA [Suspect]

REACTIONS (1)
  - Neoplasm malignant [Unknown]
